FAERS Safety Report 9826831 (Version 1)
Quarter: 2013Q4

REPORT INFORMATION
  Report Type: Spontaneous
  Country: US (occurrence: None)
  Receive Date: 20131112
  Receipt Date: 20131112
  Transmission Date: 20140711
  Serious: No
  Sender: FDA-Public Use
  Company Number: US-012632

PATIENT
  Sex: Male

DRUGS (1)
  1. PICO-SALAX (NOT SPECIFIED) [Suspect]
     Indication: BOWEL PREPARATION
     Dosage: TOOK PACKETS ONE AND TWO ABOUT 2 WEEKS PRIOR TO REPORT
     Dates: start: 201307, end: 201307

REACTIONS (4)
  - Throat irritation [None]
  - Glossodynia [None]
  - Product physical issue [None]
  - Product odour abnormal [None]
